FAERS Safety Report 7455625-6 (Version None)
Quarter: 2011Q2

REPORT INFORMATION
  Report Type: 
  Country: None (occurrence: None)
  Receive Date: 20110503
  Receipt Date: 20110427
  Transmission Date: 20111010
  Serious: Yes (Other)
  Sender: FDA-Public Use
  Company Number: US-RB-024714-11

PATIENT
  Age: 62 Year
  Sex: Female

DRUGS (1)
  1. MUCINEX [Suspect]
     Dosage: ONE TABLET ON 24-APR-2011 AT 4PM AND ONE TABLET ON 27-APR-2011 AT 5.30AM
     Route: 048

REACTIONS (1)
  - EPISTAXIS [None]
